FAERS Safety Report 8968355 (Version 1)
Quarter: 2012Q4

REPORT INFORMATION
  Report Type: Report from Study
  Country: CA (occurrence: CA)
  Receive Date: 20121217
  Receipt Date: 20121217
  Transmission Date: 20130627
  Serious: Yes (Other)
  Sender: FDA-Public Use
  Company Number: CA-ROCHE-1169243

PATIENT
  Age: 65 Year
  Sex: Male
  Weight: 65.07 kg

DRUGS (1)
  1. XOLAIR [Suspect]
     Indication: PRODUCT USED FOR UNKNOWN INDICATION
     Dosage: 300 mg, UNK
     Route: 058
     Dates: start: 20060405

REACTIONS (7)
  - Haemoptysis [Unknown]
  - Sputum discoloured [Unknown]
  - Lung disorder [Unknown]
  - Oropharyngeal pain [Unknown]
  - Dyspnoea [Unknown]
  - Feeling hot [Unknown]
  - Pyrexia [Unknown]
